FAERS Safety Report 6804333-0 (Version None)
Quarter: 2010Q2

REPORT INFORMATION
  Report Type: 
  Country: None (occurrence: None)
  Receive Date: 20100628
  Receipt Date: 20070306
  Transmission Date: 20101027
  Serious: No
  Sender: FDA-Public Use
  Company Number: US-PFIZER INC-2007017906

PATIENT
  Sex: Male
  Weight: 83.91 kg

DRUGS (3)
  1. GEODON [Suspect]
     Indication: GENERALISED ANXIETY DISORDER
  2. BUSPAR [Concomitant]
  3. PAXIL [Concomitant]

REACTIONS (2)
  - NECK INJURY [None]
  - SWOLLEN TONGUE [None]
